FAERS Safety Report 9786222 (Version 1)
Quarter: 2013Q4

REPORT INFORMATION
  Report Type: Spontaneous
  Country: US (occurrence: US)
  Receive Date: 20131227
  Receipt Date: 20131227
  Transmission Date: 20140711
  Serious: Yes (Life-Threatening, Hospitalization, Other)
  Sender: FDA-Public Use
  Company Number: US-JHP PHARMACEUTICALS, LLC-JHP201300785

PATIENT
  Age: 18 Month
  Sex: Male

DRUGS (12)
  1. KETALAR [Suspect]
     Indication: DERMATITIS DIAPER
     Dosage: SINGLE PUMP CONSISTED OF: KETAMINE 100MG
     Route: 061
  2. KETALAR [Suspect]
     Indication: OFF LABEL USE
  3. CLONIDINE [Suspect]
     Indication: DERMATITIS DIAPER
     Dosage: SINGLE PUMP CONSISTED OF: CLONIDINE 2 MG
     Route: 061
  4. CLONIDINE [Suspect]
     Indication: OFF LABEL USE
  5. GABAPENTIN [Suspect]
     Indication: DERMATITIS DIAPER
     Dosage: SINGLE PUMP CONSISTED OF: GABAPENTIN 60MG
     Route: 061
  6. GABAPENTIN [Suspect]
     Indication: OFF LABEL USE
  7. MEFENAMIC ACID [Suspect]
     Indication: DERMATITIS DIAPER
     Dosage: SINGLE PUMP CONSISTED OF: MEFENAMIC ACID 10 MG
     Route: 061
  8. MEFENAMIC ACID [Suspect]
     Indication: OFF LABEL USE
  9. IMIPRAMINE [Suspect]
     Indication: DERMATITIS DIAPER
     Dosage: A SINGLE PUMP CONSISTED OF: IMIPRAMINE 30 MG
     Route: 061
  10. IMIPRAMINE [Suspect]
     Indication: OFF LABEL USE
  11. LIDOCAINE [Suspect]
     Indication: DERMATITIS DIAPER
     Dosage: SINGLE PUMP CONSISTED OF: LIDOCAINE 10 MG
     Route: 061
  12. LIDOCAINE [Suspect]
     Indication: OFF LABEL USE

REACTIONS (3)
  - Unresponsive to stimuli [Recovered/Resolved]
  - Respiratory depression [Recovered/Resolved]
  - Off label use [Recovered/Resolved]
